FAERS Safety Report 4827518-1 (Version None)
Quarter: 2005Q4

REPORT INFORMATION
  Report Type: 
  Country: None (occurrence: None)
  Receive Date: 20051114
  Receipt Date: 20051103
  Transmission Date: 20060501
  Serious: Yes (Hospitalization, Other)
  Sender: FDA-Public Use
  Company Number: US-JNJFOC-20051101128

PATIENT
  Sex: Female

DRUGS (6)
  1. REMICADE [Suspect]
     Route: 042
  2. REMICADE [Suspect]
     Route: 042
  3. BIRTH CONTROL PILLS [Concomitant]
  4. PREVACID [Concomitant]
     Indication: GASTROINTESTINAL DISORDER
  5. HIGH-DOSE STEROIDS [Concomitant]
     Indication: CROHN'S DISEASE
  6. HIGH-DOSE STEROIDS [Concomitant]

REACTIONS (1)
  - ASTROCYTOMA [None]
